FAERS Safety Report 5292659-4 (Version None)
Quarter: 2007Q2

REPORT INFORMATION
  Report Type: 
  Country: None (occurrence: None)
  Receive Date: 20070404
  Receipt Date: 20070326
  Transmission Date: 20071010
  Serious: Yes (Hospitalization)
  Sender: FDA-Public Use
  Company Number: PAR_1459_2007

PATIENT
  Age: 75 Year
  Sex: Female
  Weight: 47.1741 kg

DRUGS (9)
  1. MEGACE [Suspect]
     Indication: INCREASED APPETITE
     Dosage: 1 TSP QDAY PO
     Route: 048
     Dates: start: 20070101, end: 20070201
  2. ZELNORM/01470302/ [Concomitant]
  3. LEXAPRO [Concomitant]
  4. ATIVAN [Concomitant]
  5. ADALAT [Concomitant]
  6. OSCAL [Concomitant]
  7. POTASSIUM ACETATE [Concomitant]
  8. DETROL LA [Concomitant]
  9. MIACALCIN [Concomitant]

REACTIONS (4)
  - ADRENAL INSUFFICIENCY [None]
  - ASTHMA [None]
  - CHEST PAIN [None]
  - DYSPNOEA [None]
